FAERS Safety Report 6838528-7 (Version None)
Quarter: 2010Q3

REPORT INFORMATION
  Report Type: 
  Country: None (occurrence: None)
  Receive Date: 20100709
  Receipt Date: 20100630
  Transmission Date: 20110219
  Serious: Yes (Hospitalization)
  Sender: FDA-Public Use
  Company Number: 2010SP036843

PATIENT
  Age: 55 Year
  Sex: Female

DRUGS (2)
  1. RIBAVIRIN [Suspect]
     Indication: HEPATITIS C
     Dates: start: 20091101
  2. INTERFERON [Suspect]
     Indication: HEPATITIS C
     Dates: start: 20091101

REACTIONS (6)
  - LUMBAR SPINAL STENOSIS [None]
  - MONOPLEGIA [None]
  - PURULENCE [None]
  - PYREXIA [None]
  - SPONDYLITIS [None]
  - STAPHYLOCOCCUS TEST POSITIVE [None]
